FAERS Safety Report 5086945-0 (Version None)
Quarter: 2006Q3

REPORT INFORMATION
  Report Type: 
  Country: None (occurrence: None)
  Receive Date: 20060821
  Receipt Date: 20060804
  Transmission Date: 20061208
  Serious: Yes (Other)
  Sender: FDA-Public Use
  Company Number: 2006AL002175

PATIENT
  Age: 93 Year
  Sex: Female

DRUGS (1)
  1. SULFATRIM AND SULFATRIM PEDIATRIC SUSPENSION (SULFAMETHOXAZOLE/TRIMETH [Suspect]
     Indication: URINARY TRACT INFECTION
     Dosage: 200 MG; BID; PO
     Route: 048
     Dates: start: 20060424, end: 20060427

REACTIONS (2)
  - DERMATITIS BULLOUS [None]
  - PHARMACEUTICAL PRODUCT COMPLAINT [None]
